FAERS Safety Report 9664665 (Version 2)
Quarter: 2013Q4

REPORT INFORMATION
  Report Type: Spontaneous
  Country: SK (occurrence: SK)
  Receive Date: 20131101
  Receipt Date: 20131106
  Transmission Date: 20140711
  Serious: Yes (Death, Hospitalization, Other)
  Sender: FDA-Public Use
  Company Number: SK-BRISTOL-MYERS SQUIBB COMPANY-19447929

PATIENT
  Age: 61 Year
  Sex: Female

DRUGS (5)
  1. ERBITUX [Suspect]
     Indication: HEAD AND NECK CANCER
     Dates: start: 201102, end: 201108
  2. CISPLATIN [Suspect]
     Dates: start: 201102, end: 201108
  3. CARBOPLATIN [Suspect]
  4. METHOTREXATE [Suspect]
     Dates: start: 201108
  5. FLUOROURACIL [Suspect]
     Dates: start: 201102, end: 201108

REACTIONS (7)
  - Pneumomediastinum [Fatal]
  - Epistaxis [Unknown]
  - Bronchopneumonia [Unknown]
  - Blood creatinine increased [Unknown]
  - Oral herpes [Unknown]
  - Skin toxicity [Unknown]
  - Stomatitis [Unknown]
